FAERS Safety Report 16390075 (Version 5)
Quarter: 2019Q3

REPORT INFORMATION
  Report Type: Spontaneous
  Country: DE (occurrence: DE)
  Receive Date: 20190604
  Receipt Date: 20190917
  Transmission Date: 20191004
  Serious: Yes (Other)
  Sender: FDA-Public Use
  Company Number: PHHY2019DE110179

PATIENT
  Age: 56 Year
  Sex: Male

DRUGS (1)
  1. COSENTYX [Suspect]
     Active Substance: SECUKINUMAB
     Indication: PSORIATIC ARTHROPATHY
     Dosage: 300 MG, QMO (EVERY 4 WEEKS)
     Route: 065
     Dates: start: 201808, end: 20190728

REACTIONS (14)
  - Sensory disturbance [Unknown]
  - Dysuria [Recovering/Resolving]
  - Urine analysis abnormal [Recovering/Resolving]
  - Psoriatic arthropathy [Unknown]
  - Bacterial test positive [Recovering/Resolving]
  - Abdominal pain lower [Unknown]
  - Scrotal swelling [Not Recovered/Not Resolved]
  - Epididymitis [Unknown]
  - Scrotal irritation [Recovering/Resolving]
  - Scrotal erythema [Not Recovered/Not Resolved]
  - Fungal infection [Recovering/Resolving]
  - Incorrect dose administered [Unknown]
  - Hypertension [Unknown]
  - Headache [Unknown]
